FAERS Safety Report 6170214-1 (Version None)
Quarter: 2009Q2

REPORT INFORMATION
  Report Type: 
  Country: None (occurrence: None)
  Receive Date: 20090427
  Receipt Date: 20090427
  Transmission Date: 20091009
  Serious: Yes (Life-Threatening, Hospitalization)
  Sender: FDA-Public Use
  Company Number: None

PATIENT
  Age: 27 Year
  Sex: Female
  Weight: 95.709 kg

DRUGS (2)
  1. ORTHO EVRA [Suspect]
     Indication: CONTRACEPTION
     Dosage: 150MCG/20MCG/DAY QWEEK TRANSDERMAL
     Route: 062
     Dates: start: 20080801, end: 20090210
  2. ORTHO EVRA [Suspect]
     Indication: DRUG DOSE OMISSION
     Dosage: 150MCG/20MCG/DAY QWEEK TRANSDERMAL
     Route: 062
     Dates: start: 20080801, end: 20090210

REACTIONS (1)
  - PULMONARY EMBOLISM [None]
